FAERS Safety Report 8589308 (Version 2)
Quarter: 2014Q4

REPORT INFORMATION
  Report Type: Spontaneous
  Country: US (occurrence: US)
  Receive Date: 20120531
  Receipt Date: 20141024
  Transmission Date: 20150529
  Serious: Yes (Congenital Anomaly)
  Sender: FDA-Public Use
  Company Number: US-FRI-1000030897

PATIENT
  Age: 0 Day
  Sex: Female

DRUGS (1)
  1. LEXAPRO [Suspect]
     Active Substance: ESCITALOPRAM OXALATE
     Route: 064

REACTIONS (6)
  - Patent ductus arteriosus [Unknown]
  - Pulmonary artery stenosis congenital [Unknown]
  - Ventricular septal defect [Unknown]
  - Neonatal cardiac failure [Unknown]
  - Transposition of the great vessels [Unknown]
  - Atrial septal defect [Unknown]

NARRATIVE: CASE EVENT DATE: 20061128
